FAERS Safety Report 11096384 (Version 1)
Quarter: 2015Q2

REPORT INFORMATION
  Report Type: Spontaneous
  Country: US (occurrence: US)
  Receive Date: 20150507
  Receipt Date: 20150507
  Transmission Date: 20150821
  Serious: Yes (Other)
  Sender: FDA-Public Use
  Company Number: US-ROCHE-1572447

PATIENT
  Age: 7 Year
  Sex: Female

DRUGS (19)
  1. DOXORUBICIN [Suspect]
     Active Substance: DOXORUBICIN
     Dosage: CONTINUATION CYCLE 2: 20 MG/M2/DOSE DAYS 0
     Route: 065
  2. RITUXIMAB [Suspect]
     Active Substance: RITUXIMAB
     Indication: POST TRANSPLANT LYMPHOPROLIFERATIVE DISORDER
     Route: 042
  3. MYCOPHENOLATE MOFETIL. [Suspect]
     Active Substance: MYCOPHENOLATE MOFETIL
     Indication: POST TRANSPLANT LYMPHOPROLIFERATIVE DISORDER
     Route: 065
  4. CYCLOPHOSPHAMIDE. [Suspect]
     Active Substance: CYCLOPHOSPHAMIDE
     Dosage: 250 MG/M2/DOSE IV Q12 HRS X 4 DOSES
     Route: 042
  5. ETOPOSIDE. [Suspect]
     Active Substance: ETOPOSIDE
     Indication: POST TRANSPLANT LYMPHOPROLIFERATIVE DISORDER
     Dosage: 150 MG/M2/DOSE QDAY X 3?CONTINUATION CYCLE 1  (DAY 0 - 2) AND CONTINUATION CYCLE 3 (DAY 0 - 2)
     Route: 065
  6. HYDROCORTISONE. [Suspect]
     Active Substance: HYDROCORTISONE
     Indication: POST TRANSPLANT LYMPHOPROLIFERATIVE DISORDER
     Dosage: IN REDUCTION PHASE (DAY 0, 2, 5), INDUCTION PHASE  (DAY 2, 4, 8), CONTINUATION CYCLE 1 (DAY 0), CYCL
     Route: 037
  7. CYCLOSPORINE. [Suspect]
     Active Substance: CYCLOSPORINE
     Indication: POST TRANSPLANT LYMPHOPROLIFERATIVE DISORDER
     Route: 065
  8. VINCRISTINE [Suspect]
     Active Substance: VINCRISTINE
     Indication: POST TRANSPLANT LYMPHOPROLIFERATIVE DISORDER
     Dosage: REDUCTION PHASE (DAY 0), IN CONTINUATION CYCLE 2  (DAY 0) AND CONTINUATION CYCLE 3  (DAY 0)
     Route: 065
  9. CYCLOPHOSPHAMIDE. [Suspect]
     Active Substance: CYCLOPHOSPHAMIDE
     Dosage: 250 MG/M2/DOSE IV Q12 HRS X 4 DOSES
     Route: 042
  10. CYTARABINE. [Suspect]
     Active Substance: CYTARABINE
     Indication: POST TRANSPLANT LYMPHOPROLIFERATIVE DISORDER
     Dosage: 50 MG/M2/DOSE Q12 HRS X 10 DOSES (ON DAY 0-4 IN CYCLE 1 AND ON DAY 0-4 IN CYCLE 3)
     Route: 065
  11. DEXRAZOXANE. [Suspect]
     Active Substance: DEXRAZOXANE
     Indication: POST TRANSPLANT LYMPHOPROLIFERATIVE DISORDER
     Dosage: INDUCTION PHASE: 300 MG/M2/DOSE X 2 DAYS 1 AND 2
     Route: 065
  12. ARA-C [Suspect]
     Active Substance: CYTARABINE
     Indication: POST TRANSPLANT LYMPHOPROLIFERATIVE DISORDER
     Dosage: IN REDUCTION PHASE (DAY 0, 2, 5), INDUCTION PHASE  (DAY 2, 4, 8), CONTINUATION CYCLE 1 (DAY 0), CYCL
     Route: 037
  13. DOXORUBICIN [Suspect]
     Active Substance: DOXORUBICIN
     Indication: POST TRANSPLANT LYMPHOPROLIFERATIVE DISORDER
     Dosage: INDUCTION PHASE: 30 MG/M2/DOSE X 2?CUMULATIVE DOXORUBICIN DOSE WAS 70 MG/M2
     Route: 065
  14. SIROLIMUS. [Suspect]
     Active Substance: SIROLIMUS
     Indication: POST TRANSPLANT LYMPHOPROLIFERATIVE DISORDER
     Route: 065
  15. VINCRISTINE [Suspect]
     Active Substance: VINCRISTINE
     Dosage: INDUCTION PHASE (DAY 0)
     Route: 065
  16. CYCLOPHOSPHAMIDE. [Suspect]
     Active Substance: CYCLOPHOSPHAMIDE
     Indication: POST TRANSPLANT LYMPHOPROLIFERATIVE DISORDER
     Dosage: CYCLOPHOSPHAMIDE 300 MG/M2/DOSE DAY 0 IN REDUCTION PHASE AND CONTINUATION CYCLE 2
     Route: 042
  17. PREDNISONE. [Suspect]
     Active Substance: PREDNISONE
     Indication: POST TRANSPLANT LYMPHOPROLIFERATIVE DISORDER
     Dosage: IN REDUCTION PHASE (DAY 0 - 6), , INDUCTION PHASE (DAY 0 - 4), CONTINUATION CYCLE 2 (DAY 0 - 4), CON
     Route: 065
  18. METHOTREXATE [Suspect]
     Active Substance: METHOTREXATE
     Indication: POST TRANSPLANT LYMPHOPROLIFERATIVE DISORDER
     Dosage: IN REDUCTION PHASE (DAY 0, 2, 5), INDUCTION PHASE  (DAY 2, 4, 8), CONTINUATION CYCLE 1 (DAY 0), CYCL
     Route: 037
  19. DEXRAZOXANE. [Suspect]
     Active Substance: DEXRAZOXANE
     Dosage: CONTINUATION CYCLE 2: 200 MG/M2/DOSE DAYS 10
     Route: 065

REACTIONS (7)
  - Mucosal inflammation [Unknown]
  - Bacteraemia [Unknown]
  - Febrile neutropenia [Unknown]
  - Bone marrow failure [Unknown]
  - Renal failure [Unknown]
  - Clostridium difficile colitis [Unknown]
  - Cellulitis [Unknown]
